FAERS Safety Report 25919929 (Version 1)
Quarter: 2025Q4

REPORT INFORMATION
  Report Type: Spontaneous
  Country: US (occurrence: None)
  Receive Date: 20251009
  Receipt Date: 20251009
  Transmission Date: 20260118
  Serious: Yes (Hospitalization)
  Sender: FDA-CTU
  Company Number: None

PATIENT
  Sex: Female
  Weight: 63 kg

DRUGS (4)
  1. WINREVAIR [Suspect]
     Active Substance: SOTATERCEPT-CSRK
     Indication: Pulmonary arterial hypertension
     Dosage: 1 ML EVERY 3 WEEKS SUABCUTANEOUS?
     Route: 058
     Dates: start: 20250411
  2. MYCOPHENOLIC ACID [Concomitant]
     Active Substance: MYCOPHENOLIC ACID
  3. REMODULIN [Concomitant]
     Active Substance: TREPROSTINIL
  4. FLOLAN STERILE DILUENT [Concomitant]

REACTIONS (4)
  - Pericardial effusion [None]
  - Scleroderma [None]
  - Dizziness [None]
  - Abnormal loss of weight [None]
